FAERS Safety Report 18898167 (Version 1)
Quarter: 2021Q1

REPORT INFORMATION
  Report Type: Spontaneous
  Country: US (occurrence: US)
  Receive Date: 20210216
  Receipt Date: 20210216
  Transmission Date: 20210420
  Serious: No
  Sender: FDA-Public Use
  Company Number: US-DRREDDYS-USA/USA/21/0131598

PATIENT
  Age: 84 Year
  Sex: Female
  Weight: 67.5 kg

DRUGS (3)
  1. MYOFLEX [Suspect]
     Active Substance: TROLAMINE SALICYLATE
     Indication: TENDONITIS
     Dosage: APPLIED TWO TIMES A DAY MORNING AND EVENING AND SOMETIMES 3 TIMES A DAY
     Route: 061
     Dates: end: 20210131
  2. PRAVACHOL [Concomitant]
     Active Substance: PRAVASTATIN SODIUM
     Indication: PRODUCT USED FOR UNKNOWN INDICATION
  3. MYOFLEX [Suspect]
     Active Substance: TROLAMINE SALICYLATE
     Dosage: APPLIED TWO TIMES A DAY MORNING AND EVENING AND SOMETIMES 3 TIMES A DAY
     Route: 061
     Dates: end: 20210131

REACTIONS (4)
  - Drug ineffective [Unknown]
  - Incorrect dose administered [Unknown]
  - Product quality issue [Unknown]
  - Product use in unapproved indication [Unknown]
